FAERS Safety Report 5965872-8 (Version None)
Quarter: 2008Q4

REPORT INFORMATION
  Report Type: 
  Country: None (occurrence: None)
  Receive Date: 20081125
  Receipt Date: 20081120
  Transmission Date: 20090506
  Serious: Yes (Other)
  Sender: FDA-Public Use
  Company Number: AU-GILEAD-2008-0019121

PATIENT
  Sex: Male

DRUGS (2)
  1. HEPSERA [Suspect]
     Indication: HEPATITIS B
  2. LAMIVUDINE [Suspect]

REACTIONS (2)
  - BLOOD CREATININE INCREASED [None]
  - DRUG INEFFECTIVE [None]
